FAERS Safety Report 17570096 (Version 1)
Quarter: 2020Q1

REPORT INFORMATION
  Report Type: Report from Study
  Country: GB (occurrence: GB)
  Receive Date: 20200323
  Receipt Date: 20200323
  Transmission Date: 20200409
  Serious: Yes (Other)
  Sender: FDA-Public Use
  Company Number: GB-AEGERION PHARMACEUTICAL, INC-AEGR004747

PATIENT

DRUGS (10)
  1. JUXTAPID [Suspect]
     Active Substance: LOMITAPIDE MESYLATE
     Dosage: 10 MG, QD
     Route: 048
     Dates: start: 20190904, end: 20191113
  2. OMEGA 3,6,9 [Concomitant]
     Indication: SUPPLEMENTATION THERAPY
     Dosage: 1 DF, QD
     Route: 048
     Dates: start: 20190226
  3. ROSUVASTATIN. [Concomitant]
     Active Substance: ROSUVASTATIN
     Indication: HYPERCHOLESTEROLAEMIA
     Dosage: 40 MG, QD
     Route: 048
     Dates: start: 2011
  4. ASPIRIN                            /00002701/ [Concomitant]
     Active Substance: ASPIRIN
     Indication: CORONARY ARTERY DISEASE
     Dosage: 75 MG, QD
     Route: 048
     Dates: start: 1997
  5. BISOPROLOL [Concomitant]
     Active Substance: BISOPROLOL
     Indication: CORONARY ARTERY DISEASE
     Dosage: 2.5 MG, QD
     Route: 048
     Dates: start: 2012
  6. VITAMIN E                          /00110501/ [Concomitant]
     Active Substance: TOCOPHEROL
     Indication: SUPPLEMENTATION THERAPY
     Dosage: 400 UNITS, QD
     Route: 048
     Dates: start: 20190226
  7. JUXTAPID [Suspect]
     Active Substance: LOMITAPIDE MESYLATE
     Dosage: 5 MG, QD
     Route: 048
     Dates: start: 20200110, end: 20200212
  8. COLESEVELAM [Concomitant]
     Active Substance: COLESEVELAM
     Indication: HYPERCHOLESTEROLAEMIA
     Dosage: 625 MG, QD
     Route: 048
     Dates: start: 20200103
  9. JUXTAPID [Suspect]
     Active Substance: LOMITAPIDE MESYLATE
     Indication: TYPE IIA HYPERLIPIDAEMIA
     Dosage: 5 MG, QD
     Route: 048
     Dates: start: 20190226, end: 20190903
  10. EZETIMIBE. [Concomitant]
     Active Substance: EZETIMIBE
     Indication: HYPERCHOLESTEROLAEMIA
     Dosage: 10 MG, QD
     Route: 048
     Dates: start: 2014

REACTIONS (1)
  - Liver function test increased [Recovered/Resolved]

NARRATIVE: CASE EVENT DATE: 20191112
